FAERS Safety Report 5049471-0 (Version None)
Quarter: 2006Q3

REPORT INFORMATION
  Report Type: 
  Country: None (occurrence: None)
  Receive Date: 20060711
  Receipt Date: 20060711
  Transmission Date: 20061208
  Serious: Yes (Death)
  Sender: FDA-Public Use
  Company Number: None

PATIENT
  Sex: Female
  Weight: 96.9 kg

DRUGS (9)
  1. FLUDARABINE [Suspect]
     Indication: STEM CELL TRANSPLANT
     Dosage: 45MG DAILY IV DRIP
     Route: 041
     Dates: start: 20060517, end: 20060521
  2. BUSULFAN [Suspect]
     Dosage: 237 MG DAILY IV DRIP
     Route: 041
     Dates: start: 20060518, end: 20060521
  3. CAMPATH [Suspect]
     Indication: STEM CELL TRANSPLANT
     Dosage: 20 MG DAILY IV DRIP
     Route: 041
     Dates: start: 20060517, end: 20060521
  4. PROVERA [Concomitant]
  5. PREVACID [Concomitant]
  6. HYDROXEUREA [Concomitant]
  7. ISOTRETINOIN [Concomitant]
  8. SPIRONOLACTONE [Concomitant]
  9. CASPOFUNGIN [Concomitant]

REACTIONS (3)
  - DISEASE RECURRENCE [None]
  - GENERAL PHYSICAL HEALTH DETERIORATION [None]
  - SEPSIS [None]
